FAERS Safety Report 4992780-1 (Version None)
Quarter: 2006Q1

REPORT INFORMATION
  Report Type: 
  Country: None (occurrence: None)
  Receive Date: 20060315
  Receipt Date: 20060209
  Transmission Date: 20060701
  Serious: Yes (Other)
  Sender: FDA-Public Use
  Company Number: 24671

PATIENT
  Sex: Male
  Weight: 78.4723 kg

DRUGS (4)
  1. BUPRENORPHINE HCL [Suspect]
     Indication: PAIN
     Dosage: 4ML/SQ/DAY
     Dates: start: 20060206
  2. MAGNESIUM SULFATE [Concomitant]
  3. FISH OIL [Concomitant]
  4. VERAPAMIL [Concomitant]

REACTIONS (1)
  - SOMNOLENCE [None]
